FAERS Safety Report 7436151-7 (Version None)
Quarter: 2011Q2

REPORT INFORMATION
  Report Type: 
  Country: None (occurrence: None)
  Receive Date: 20110425
  Receipt Date: 20110422
  Transmission Date: 20111010
  Serious: Yes (Other)
  Sender: FDA-Public Use
  Company Number: US-BAYER-2011-033851

PATIENT
  Age: 66 Year
  Sex: Female

DRUGS (7)
  1. ALEVE (CAPLET) [Suspect]
     Indication: OSTEOARTHRITIS
     Route: 048
  2. METFORMIN [Concomitant]
  3. ANGIOTENSIN II ANTAGONISTS [Concomitant]
  4. THIAZIDE DERIVATIVES [Concomitant]
  5. CELECOXIB [Interacting]
     Indication: OSTEOARTHRITIS
  6. BETA BLOCKING AGENTS [Concomitant]
  7. SULFONYLUREA [Concomitant]

REACTIONS (6)
  - CARDIAC FAILURE CONGESTIVE [None]
  - GASTROINTESTINAL HAEMORRHAGE [None]
  - OEDEMA [None]
  - HYPERTENSION [None]
  - RENAL FAILURE CHRONIC [None]
  - DYSPEPSIA [None]
